FAERS Safety Report 13952417 (Version 1)
Quarter: 2017Q3

REPORT INFORMATION
  Report Type: Spontaneous
  Country: US (occurrence: US)
  Receive Date: 20170911
  Receipt Date: 20170911
  Transmission Date: 20171128
  Serious: No
  Sender: FDA-Public Use
  Company Number: US-TEVA-726368ACC

PATIENT
  Age: 34 Year
  Sex: Female
  Weight: 106.69 kg

DRUGS (1)
  1. FENTANYL TRANSDERMAL SYSTEM [Suspect]
     Active Substance: FENTANYL
     Indication: PAIN
     Route: 062
     Dates: start: 20161019, end: 20161022

REACTIONS (2)
  - Erythema [Not Recovered/Not Resolved]
  - Skin irritation [Unknown]

NARRATIVE: CASE EVENT DATE: 201610
